FAERS Safety Report 12160983 (Version 6)
Quarter: 2020Q3

REPORT INFORMATION
  Report Type: Spontaneous
  Country: US (occurrence: US)
  Receive Date: 20160308
  Receipt Date: 20200812
  Transmission Date: 20201102
  Serious: Yes (Other)
  Sender: FDA-Public Use
  Company Number: US-PFIZER INC-2016142088

PATIENT
  Age: 60 Year
  Sex: Female
  Weight: 66.68 kg

DRUGS (2)
  1. AROMASIN [Suspect]
     Active Substance: EXEMESTANE
     Indication: BREAST CANCER
     Dosage: 25 MG, 1X/DAY
     Route: 048
     Dates: start: 2013
  2. AROMASIN [Suspect]
     Active Substance: EXEMESTANE
     Dosage: 25 MG, 1X/DAY
     Dates: start: 20160406

REACTIONS (6)
  - Cough [Recovering/Resolving]
  - Second primary malignancy [Unknown]
  - Paranasal sinus hypersecretion [Recovering/Resolving]
  - Second primary malignancy [Unknown]
  - Colon cancer [Unknown]
  - Throat cancer [Unknown]

NARRATIVE: CASE EVENT DATE: 201512
